FAERS Safety Report 8817268 (Version 3)
Quarter: 2012Q4

REPORT INFORMATION
  Report Type: 
  Country: US (occurrence: US)
  Receive Date: 20121004
  Receipt Date: 20121012
  Transmission Date: 20130627
  Serious: No
  Sender: FDA-Public Use
  Company Number: US-ASTRAZENECA-2012SE74690

PATIENT
  Age: 57 Year
  Sex: Male

DRUGS (3)
  1. SYMBICORT PMDI [Suspect]
     Route: 055
  2. NEXIUM [Suspect]
     Route: 048
  3. PRILOSEC OTC [Suspect]
     Route: 048

REACTIONS (4)
  - Gastric disorder [Unknown]
  - Adverse event [Unknown]
  - Drug dose omission [Unknown]
  - Drug ineffective [Unknown]
